FAERS Safety Report 4676714-5 (Version None)
Quarter: 2005Q2

REPORT INFORMATION
  Report Type: 
  Country: None (occurrence: None)
  Receive Date: 20050527
  Receipt Date: 20050502
  Transmission Date: 20051028
  Serious: Yes (Hospitalization)
  Sender: FDA-Public Use
  Company Number: US-NOVOPROD-243912

PATIENT
  Age: 9 Year
  Sex: Male

DRUGS (3)
  1. NOVOLOG [Suspect]
     Indication: DIABETES MELLITUS INSULIN-DEPENDENT
     Dosage: 10 IU, QD
     Route: 058
     Dates: start: 20020101
  2. STRATTERA [Concomitant]
     Indication: ATTENTION DEFICIT/HYPERACTIVITY DISORDER
  3. ONDANSETRON [Concomitant]
     Indication: DYSPEPSIA

REACTIONS (3)
  - BLOOD GLUCOSE DECREASED [None]
  - CONVULSION [None]
  - HYPOGLYCAEMIA [None]
